FAERS Safety Report 5822171-2 (Version None)
Quarter: 2008Q3

REPORT INFORMATION
  Report Type: 
  Country: None (occurrence: None)
  Receive Date: 20080721
  Receipt Date: 20080703
  Transmission Date: 20090109
  Serious: Yes (Hospitalization)
  Sender: FDA-Public Use
  Company Number: 2007S1000519

PATIENT
  Age: 71 Year
  Sex: Male

DRUGS (16)
  1. CUBICIN [Suspect]
     Indication: SKIN INFECTION
     Dosage: 450 MG; Q24H; IV
     Route: 042
     Dates: start: 20070529, end: 20070530
  2. PROTHYRID [Concomitant]
  3. CORVATON [Concomitant]
  4. TENORMIN [Concomitant]
  5. LITHIUM [Concomitant]
  6. FUROSEMIDE [Concomitant]
  7. ACETYLSALICYLIC ACID SRT [Concomitant]
  8. RAMIPRIL [Concomitant]
  9. SIMVASTATIN [Concomitant]
  10. CITALOPRAM HYDROBROMIDE [Concomitant]
  11. MIRTAZAPINE [Concomitant]
  12. LACTULOSE [Concomitant]
  13. CALCIUM CARBONATE W/COLECALCIFEROL [Concomitant]
  14. PANTOPRAZOLE SODIUM [Concomitant]
  15. PREDNISONE [Concomitant]
  16. LYRICA [Concomitant]

REACTIONS (13)
  - ALPHA 1 MICROGLOBULIN URINE INCREASED [None]
  - BLOOD ALBUMIN INCREASED [None]
  - BLOOD IMMUNOGLOBULIN G INCREASED [None]
  - BONE PAIN [None]
  - HAEMOGLOBIN URINE PRESENT [None]
  - HYPERKERATOSIS [None]
  - LEUKOCYTOCLASTIC VASCULITIS [None]
  - LIGHT CHAIN ANALYSIS INCREASED [None]
  - PROTEIN URINE PRESENT [None]
  - PSORIASIS [None]
  - SKIN HYPERPIGMENTATION [None]
  - URINARY TRACT INFECTION [None]
  - VASCULAR OCCLUSION [None]
